FAERS Safety Report 8968463 (Version 1)
Quarter: 2012Q4

REPORT INFORMATION
  Report Type: 
  Country: US (occurrence: US)
  Receive Date: 20121218
  Receipt Date: 20121218
  Transmission Date: 20130627
  Serious: No
  Sender: FDA-Public Use
  Company Number: US-BRISTOL-MYERS SQUIBB COMPANY-16379349

PATIENT
  Age: 41 Year
  Sex: Female
  Weight: 60.32 kg

DRUGS (3)
  1. ABILIFY [Suspect]
     Indication: DEPRESSION
     Dosage: restart :jan2012
     Dates: start: 201104
  2. TRAZODONE HCL [Concomitant]
  3. AMBIEN [Concomitant]

REACTIONS (2)
  - Weight increased [Not Recovered/Not Resolved]
  - Rash [Not Recovered/Not Resolved]
